FAERS Safety Report 4975243-9 (Version None)
Quarter: 2006Q2

REPORT INFORMATION
  Report Type: 
  Country: None (occurrence: None)
  Receive Date: 20060418
  Receipt Date: 20060405
  Transmission Date: 20061013
  Serious: Yes (Disabling)
  Sender: FDA-Public Use
  Company Number: US-MERCK-0604USA01696

PATIENT
  Age: 58 Year

DRUGS (3)
  1. VIOXX [Suspect]
     Indication: BACK PAIN
     Route: 048
     Dates: start: 20010201, end: 20010301
  2. VIOXX [Suspect]
     Route: 048
     Dates: start: 20010301, end: 20040401
  3. VIOXX [Suspect]
     Route: 048
     Dates: start: 20010301, end: 20040401

REACTIONS (1)
  - MYOCARDIAL INFARCTION [None]
